FAERS Safety Report 6380551-3 (Version None)
Quarter: 2009Q3

REPORT INFORMATION
  Report Type: 
  Country: None (occurrence: None)
  Receive Date: 20090929
  Receipt Date: 20090916
  Transmission Date: 20100115
  Serious: Yes (Other)
  Sender: FDA-Public Use
  Company Number: US-MYLANLABS-2009S1004341

PATIENT
  Age: 18 Year
  Sex: Female

DRUGS (2)
  1. AMNESTEEM [Suspect]
     Route: 048
     Dates: start: 20080715, end: 20081215
  2. ORAL CONTRACEPTIVE NOS [Concomitant]
     Route: 048

REACTIONS (2)
  - CONVULSION [None]
  - DRUG EXPOSURE DURING PREGNANCY [None]
